FAERS Safety Report 8138556-8 (Version None)
Quarter: 2012Q1

REPORT INFORMATION
  Report Type: 
  Country: None (occurrence: None)
  Receive Date: 20120213
  Receipt Date: 20120128
  Transmission Date: 20120608
  Serious: Yes (Death)
  Sender: FDA-Public Use
  Company Number: 2012SP000046

PATIENT
  Age: 74 Year
  Sex: Male

DRUGS (6)
  1. GENTAMICIN [Suspect]
     Indication: KLEBSIELLA INFECTION
  2. CIPROFLOXACIN [Suspect]
     Indication: KLEBSIELLA INFECTION
  3. CORTISONE ACETATE [Suspect]
     Indication: AUTOIMMUNE HEPATITIS
  4. COLISTIN (COLISTIN) [Concomitant]
     Indication: KLEBSIELLA INFECTION
  5. VANCOMYCIN [Suspect]
     Indication: STAPHYLOCOCCAL BACTERAEMIA
  6. TIGECYCLINE [Suspect]
     Indication: KLEBSIELLA INFECTION

REACTIONS (8)
  - RESPIRATORY DISTRESS [None]
  - HYPOXIA [None]
  - DRUG INEFFECTIVE [None]
  - CONDITION AGGRAVATED [None]
  - PYREXIA [None]
  - DRUG RESISTANCE [None]
  - LUNG INFILTRATION [None]
  - TRICHOSPORON INFECTION [None]
